FAERS Safety Report 8171181-1 (Version None)
Quarter: 2012Q1

REPORT INFORMATION
  Report Type: 
  Country: None (occurrence: None)
  Receive Date: 20120228
  Receipt Date: 20111202
  Transmission Date: 20120608
  Serious: No
  Sender: FDA-Public Use
  Company Number: US-BRISTOL-MYERS SQUIBB COMPANY-16267171

PATIENT
  Age: 77 Year
  Sex: Female

DRUGS (4)
  1. MULTI-VITAMIN [Concomitant]
  2. ONGLYZA [Suspect]
  3. PRILOSEC [Concomitant]
  4. AMLODIPINE [Concomitant]

REACTIONS (1)
  - OEDEMA PERIPHERAL [None]
